FAERS Safety Report 19800271 (Version 9)
Quarter: 2023Q2

REPORT INFORMATION
  Report Type: Report from Study
  Country: US (occurrence: US)
  Receive Date: 20210907
  Receipt Date: 20230608
  Transmission Date: 20230722
  Serious: Yes (Hospitalization, Other)
  Sender: FDA-Public Use
  Company Number: US-ABBVIE-21K-163-4066850-00

PATIENT
  Age: 72 Year
  Sex: Female
  Weight: 63 kg

DRUGS (17)
  1. HUMIRA [Suspect]
     Active Substance: ADALIMUMAB
     Indication: Rheumatoid arthritis
     Dosage: CITRATE FREE, FORM STRENGTH: 40 MILLIGRAM
     Route: 058
     Dates: start: 20151108
  2. HUMIRA [Suspect]
     Active Substance: ADALIMUMAB
  3. Covid 19 Vaccine [Concomitant]
     Indication: COVID-19 immunisation
     Dosage: PFIZER, 2ND DOSE
     Route: 030
     Dates: start: 20210211, end: 20210211
  4. Covid 19 Vaccine [Concomitant]
     Indication: COVID-19 immunisation
     Dosage: PFIZER, 3RD DOSE
     Route: 030
     Dates: start: 20211006, end: 20211006
  5. Covid 19 Vaccine [Concomitant]
     Indication: COVID-19 immunisation
     Dosage: PFIZER, 1ST DOSE
     Route: 030
     Dates: start: 20210122, end: 20210122
  6. POTASSIUM [Concomitant]
     Active Substance: POTASSIUM
     Indication: Product used for unknown indication
     Dosage: 99 MG
  7. LEVOTHYROXINE [Concomitant]
     Active Substance: LEVOTHYROXINE
     Indication: Product used for unknown indication
  8. NITROGLYCERIN [Concomitant]
     Active Substance: NITROGLYCERIN
     Indication: Product used for unknown indication
  9. Metroprolol succinate [Concomitant]
     Indication: Product used for unknown indication
  10. AMLODIPINE BESYLATE [Concomitant]
     Active Substance: AMLODIPINE BESYLATE
     Indication: Product used for unknown indication
  11. FLUOROMETHOLONE [Concomitant]
     Active Substance: FLUOROMETHOLONE
     Indication: Product used for unknown indication
  12. LORATADINE [Concomitant]
     Active Substance: LORATADINE
     Indication: Product used for unknown indication
  13. ISOSORBIDE MONONITRATE [Concomitant]
     Active Substance: ISOSORBIDE MONONITRATE
     Indication: Product used for unknown indication
  14. MINERALS\VITAMINS [Concomitant]
     Active Substance: MINERALS\VITAMINS
     Indication: Product used for unknown indication
  15. THERATEARS [Concomitant]
     Active Substance: CARBOXYMETHYLCELLULOSE SODIUM
     Indication: Product used for unknown indication
  16. Glucosamine HCI [Concomitant]
     Indication: Product used for unknown indication
  17. CALCIUM CITRATE\CHOLECALCIFEROL [Concomitant]
     Active Substance: CALCIUM CITRATE\CHOLECALCIFEROL
     Indication: Product used for unknown indication

REACTIONS (13)
  - Macular degeneration [Unknown]
  - Corneal dystrophy [Recovering/Resolving]
  - White blood cell count increased [Unknown]
  - Abdominal pain upper [Unknown]
  - Blindness [Unknown]
  - Atrial fibrillation [Recovered/Resolved]
  - Glaucoma [Not Recovered/Not Resolved]
  - Lacrimation increased [Not Recovered/Not Resolved]
  - Tendonitis [Recovering/Resolving]
  - Spinal stenosis [Unknown]
  - Dry eye [Not Recovered/Not Resolved]
  - Hypertension [Recovering/Resolving]
  - Rash [Unknown]

NARRATIVE: CASE EVENT DATE: 20091001
